FAERS Safety Report 17165826 (Version 1)
Quarter: 2019Q4

REPORT INFORMATION
  Report Type: Spontaneous
  Country: US (occurrence: US)
  Receive Date: 20191217
  Receipt Date: 20191217
  Transmission Date: 20200122
  Serious: No
  Sender: FDA-Public Use
  Company Number: US-ASTRAZENECA-2019SF77349

PATIENT
  Sex: Male

DRUGS (1)
  1. SYNAGIS [Suspect]
     Active Substance: PALIVIZUMAB
     Dosage: 100 MG/ML OR 50 MG/ML STRENGTH, 15MG/KG MONTHLY
     Route: 030

REACTIONS (6)
  - Sinusitis [Unknown]
  - Inappropriate schedule of product administration [Unknown]
  - Cough [Unknown]
  - Nasal congestion [Unknown]
  - Ear infection [Unknown]
  - Bronchospasm [Unknown]
